FAERS Safety Report 4263388-0 (Version None)
Quarter: 2004Q1

REPORT INFORMATION
  Report Type: 
  Country: None (occurrence: None)
  Receive Date: 20040105
  Receipt Date: 20031225
  Transmission Date: 20041129
  Serious: Yes (Hospitalization)
  Sender: FDA-Public Use
  Company Number: JP-ROCHE-354859

PATIENT
  Age: 48 Year
  Sex: Female
  Weight: 39 kg

DRUGS (1)
  1. ROCEPHIN [Suspect]
     Dosage: ROUTE WAS VIA DRIP.
     Route: 050
     Dates: start: 20030820, end: 20030825

REACTIONS (1)
  - PANCYTOPENIA [None]
